FAERS Safety Report 8599446-X (Version None)
Quarter: 2012Q3

REPORT INFORMATION
  Report Type: 
  Country: None (occurrence: None)
  Receive Date: 20120816
  Receipt Date: 20120810
  Transmission Date: 20120928
  Serious: Yes (Death, Other)
  Sender: FDA-Public Use
  Company Number: US-PURDUE-USA-2012-0090408

PATIENT
  Age: 17 Month
  Sex: Male
  Weight: 11.791 kg

DRUGS (1)
  1. OXYCODONE HCL [Suspect]
     Indication: OVERDOSE
     Dosage: UNK
     Dates: end: 20111101

REACTIONS (3)
  - OVERDOSE [None]
  - CARDIO-RESPIRATORY ARREST [None]
  - BRONCHOPNEUMONIA [None]
